FAERS Safety Report 6283448-2 (Version None)
Quarter: 2009Q3

REPORT INFORMATION
  Report Type: 
  Country: None (occurrence: None)
  Receive Date: 20090724
  Receipt Date: 20090408
  Transmission Date: 20100115
  Serious: No
  Sender: FDA-Public Use
  Company Number: US-ALEXION-A200900273

PATIENT
  Sex: Male

DRUGS (17)
  1. SOLIRIS [Suspect]
     Indication: PAROXYSMAL NOCTURNAL HAEMOGLOBINURIA
     Dosage: 600 MG, QWK X4
     Route: 042
     Dates: start: 20071219, end: 20080109
  2. SOLIRIS [Suspect]
     Dosage: 900 MG, Q2WK
     Route: 042
     Dates: start: 20080116
  3. PREDNISONE TAB [Concomitant]
     Dosage: 5 MG, QD
  4. ZOCOR [Concomitant]
     Dosage: 10 MG, QD
  5. FOLIC ACID [Concomitant]
     Dosage: 1 MG, QD
  6. FLOMAX [Concomitant]
     Dosage: .4 MG, QD
  7. COREG [Concomitant]
     Dosage: 25 MG, BID
  8. ALDACTONE [Concomitant]
     Dosage: 12.5 MG, QOD
  9. LANOXIN [Concomitant]
     Dosage: .125 MG, 5 DAY/WK
  10. NEXIUM [Concomitant]
     Dosage: 40 MG, BID
  11. LASIX [Concomitant]
     Dosage: 40 MG, QOD
  12. ALLOPURINOL [Concomitant]
     Dosage: 100 MG, QD
  13. PROSCAR [Concomitant]
     Dosage: 5 MG, QD
  14. ALTACE [Concomitant]
     Dosage: 2.5 MG, QD
  15. RYTHMOL [Concomitant]
     Dosage: 150 MG, TID
  16. COUMADIN [Concomitant]
     Dosage: 7.5 MG MWF/WEEK, UNK
  17. COUMADIN [Concomitant]
     Dosage: 5 MG FOUR DAYS/WEEK, UNK

REACTIONS (3)
  - ARTHRITIS [None]
  - GAIT DISTURBANCE [None]
  - THROMBOSIS [None]
